FAERS Safety Report 17887594 (Version 1)
Quarter: 2020Q2

REPORT INFORMATION
  Report Type: Spontaneous
  Country: US (occurrence: US)
  Receive Date: 20200611
  Receipt Date: 20200611
  Transmission Date: 20200714
  Serious: No
  Sender: FDA-Public Use
  Company Number: US-BIOMARINAP-US-2020-130239

PATIENT
  Sex: Female
  Weight: 67.7 kg

DRUGS (1)
  1. VIMIZIM [Suspect]
     Active Substance: ELOSULFASE ALFA
     Indication: MUCOPOLYSACCHARIDOSIS IV
     Dosage: 140 MILLIGRAM, QW
     Route: 042
     Dates: start: 20160309

REACTIONS (4)
  - Product dose omission [Unknown]
  - Pyrexia [Recovered/Resolved]
  - Ear infection [Recovered/Resolved]
  - Hypoacusis [Recovered/Resolved]
